FAERS Safety Report 25829341 (Version 1)
Quarter: 2025Q3

REPORT INFORMATION
  Report Type: Spontaneous
  Country: CA (occurrence: CA)
  Receive Date: 20250922
  Receipt Date: 20250922
  Transmission Date: 20251020
  Serious: Yes (Other)
  Sender: CELLTRION
  Company Number: CA-CELLTRION INC.-2024CA029289

PATIENT

DRUGS (2)
  1. STEQEYMA [Suspect]
     Active Substance: USTEKINUMAB-STBA
     Indication: Colitis ulcerative
     Dosage: 90 MG EVERY 4 WEEKS
     Route: 058
     Dates: start: 20241123
  2. STEQEYMA [Suspect]
     Active Substance: USTEKINUMAB-STBA
     Indication: Colitis ulcerative
     Route: 042
     Dates: start: 20241123

REACTIONS (4)
  - Rectal haemorrhage [Unknown]
  - Abdominal pain [Unknown]
  - Drug level decreased [Unknown]
  - Off label use [Unknown]

NARRATIVE: CASE EVENT DATE: 20241118
